FAERS Safety Report 12885534 (Version 1)
Quarter: 2016Q4

REPORT INFORMATION
  Report Type: Spontaneous
  Country: US (occurrence: US)
  Receive Date: 20161026
  Receipt Date: 20161026
  Transmission Date: 20170207
  Serious: Yes (Hospitalization, Disabling)
  Sender: FDA-Public Use
  Company Number: None

PATIENT
  Age: 68 Year
  Sex: Male
  Weight: 109.77 kg

DRUGS (13)
  1. LISINOPRIL. [Concomitant]
     Active Substance: LISINOPRIL
  2. FUROSEMIDE. [Concomitant]
     Active Substance: FUROSEMIDE
  3. ACETAMINOPHEN. [Concomitant]
     Active Substance: ACETAMINOPHEN
  4. MELATONIN [Concomitant]
     Active Substance: MELATONIN
  5. INVEGA [Suspect]
     Active Substance: PALIPERIDONE
     Indication: PRODUCT USED FOR UNKNOWN INDICATION
     Dosage: INVEGA SUSTENNA - INJECTION - FREQUENCY - EVERY 4 WEEKS
     Dates: start: 201509
  6. ELIQUIS [Concomitant]
     Active Substance: APIXABAN
  7. POTASSIUM CHLORIDE ER [Concomitant]
     Active Substance: POTASSIUM CHLORIDE
  8. DEPAKOTE (DIVALPROEX SODIUM) [Concomitant]
  9. COGENTIN (BENZTROPINE MESYLATE) [Concomitant]
  10. DEPEND UNDERGARMENTS [Concomitant]
  11. METOPROLOL TARTRATE. [Concomitant]
     Active Substance: METOPROLOL TARTRATE
  12. ASPIRIN. [Concomitant]
     Active Substance: ASPIRIN
  13. ZOCOR [Concomitant]
     Active Substance: SIMVASTATIN

REACTIONS (12)
  - Dyspnoea [None]
  - Dysphonia [None]
  - Asthenia [None]
  - Paraesthesia [None]
  - Balance disorder [None]
  - Fatigue [None]
  - Muscle spasms [None]
  - Urinary incontinence [None]
  - Malaise [None]
  - Disturbance in attention [None]
  - Weight increased [None]
  - Sleep disorder [None]

NARRATIVE: CASE EVENT DATE: 201601
